FAERS Safety Report 11729558 (Version 2)
Quarter: 2015Q4

REPORT INFORMATION
  Report Type: Spontaneous
  Country: US (occurrence: US)
  Receive Date: 20151112
  Receipt Date: 20151116
  Transmission Date: 20160304
  Serious: Yes (Other)
  Sender: FDA-Public Use
  Company Number: US-BAYER-2015-465340

PATIENT
  Sex: Male

DRUGS (2)
  1. BAYER GENUINE ASPIRIN [Suspect]
     Active Substance: ASPIRIN
  2. APIXABAN [Interacting]
     Active Substance: APIXABAN

REACTIONS (2)
  - Gastrointestinal haemorrhage [None]
  - Labelled drug-drug interaction medication error [None]
